FAERS Safety Report 21700631 (Version 2)
Quarter: 2022Q4

REPORT INFORMATION
  Report Type: Report from Study
  Country: GB (occurrence: GB)
  Receive Date: 20221208
  Receipt Date: 20221210
  Transmission Date: 20230113
  Serious: Yes (Other)
  Sender: FDA-Public Use
  Company Number: GB-TEVA-2022-GB-2832517

PATIENT
  Sex: Female

DRUGS (1)
  1. AJOVY [Suspect]
     Active Substance: FREMANEZUMAB-VFRM
     Indication: Product used for unknown indication
     Route: 065

REACTIONS (6)
  - Hypoaesthesia [Unknown]
  - Lymphangitis [Unknown]
  - Injection site swelling [Unknown]
  - Injection site rash [Unknown]
  - Fatigue [Unknown]
  - Chest discomfort [Unknown]
